FAERS Safety Report 4851612-2 (Version None)
Quarter: 2005Q4

REPORT INFORMATION
  Report Type: 
  Country: None (occurrence: None)
  Receive Date: 20051212
  Receipt Date: 20030605
  Transmission Date: 20060501
  Serious: Yes (Hospitalization, Other)
  Sender: FDA-Public Use
  Company Number: US-MERCK-0306USA00631

PATIENT
  Age: 35 Year
  Sex: Male
  Weight: 108 kg

DRUGS (45)
  1. VIOXX [Suspect]
     Indication: ARTHRITIS
     Route: 048
     Dates: start: 20001228
  2. VIOXX [Suspect]
     Route: 065
     Dates: start: 20001226
  3. VIOXX [Suspect]
     Route: 048
  4. VIOXX [Suspect]
     Route: 048
     Dates: start: 19991001
  5. TOPROL-XL [Concomitant]
     Route: 065
  6. TOPROL-XL [Concomitant]
     Route: 065
  7. TOPROL-XL [Concomitant]
     Route: 065
  8. IMDUR [Concomitant]
     Route: 065
     Dates: start: 20000101
  9. IMDUR [Concomitant]
     Route: 065
  10. IMDUR [Concomitant]
     Route: 065
  11. NITRO-DUR [Concomitant]
     Route: 065
  12. DIOVAN [Concomitant]
     Route: 065
  13. DIOVAN [Concomitant]
     Route: 065
     Dates: start: 20010713, end: 20030522
  14. DILTIAZEM HYDROCHLORIDE [Concomitant]
     Route: 065
  15. PLAVIX [Concomitant]
     Route: 065
     Dates: start: 20000101
  16. ZOCOR [Concomitant]
     Route: 048
  17. ZOCOR [Concomitant]
     Route: 065
  18. ASPIRIN [Concomitant]
     Route: 065
     Dates: start: 20000101
  19. XANAX [Concomitant]
     Route: 065
     Dates: start: 20010515
  20. FOLIC ACID [Concomitant]
     Route: 065
  21. ALLOPURINOL [Concomitant]
     Route: 065
     Dates: start: 20000101
  22. LECITHIN AND PROTEIN (UNSPECIFIED) [Concomitant]
     Route: 065
  23. LEVOTHROID [Concomitant]
     Route: 065
  24. LEVOTHROID [Concomitant]
     Route: 065
     Dates: start: 20030408, end: 20030522
  25. LEVOTHROID [Concomitant]
     Route: 065
     Dates: start: 20030522
  26. SOMA [Concomitant]
     Route: 065
  27. INDOCIN [Concomitant]
     Route: 048
  28. INDOCIN [Concomitant]
     Route: 065
  29. COLCHICINE [Concomitant]
     Route: 065
  30. NORCO [Concomitant]
     Route: 065
  31. [THERAPY UNSPECIFIED] [Concomitant]
     Route: 065
  32. [THERAPY UNSPECIFIED] [Concomitant]
     Route: 065
  33. VITAMINS (UNSPECIFIED) [Concomitant]
     Route: 065
  34. K-DUR 10 [Concomitant]
     Route: 065
  35. LASIX [Concomitant]
     Route: 065
  36. ZETIA [Concomitant]
     Indication: BLOOD CHOLESTEROL INCREASED
     Route: 065
  37. CARDIZEM LA [Concomitant]
     Indication: CARDIAC DISORDER
     Route: 065
  38. LOPRESSOR [Concomitant]
     Indication: CARDIAC DISORDER
     Route: 065
  39. LOPRESSOR [Concomitant]
     Route: 065
  40. PREVACID [Concomitant]
     Indication: DYSPEPSIA
     Route: 065
  41. LIPOTRIAD [Concomitant]
     Indication: HEPATIC FUNCTION ABNORMAL
     Route: 065
  42. LEXAPRO [Concomitant]
     Indication: STRESS
     Route: 065
  43. LEVOXYL [Concomitant]
     Indication: THYROID DISORDER
     Route: 065
  44. NITROLINGUAL [Concomitant]
     Route: 065
  45. [THERAPY UNSPECIFIED] [Concomitant]
     Route: 065

REACTIONS (35)
  - ANGINA PECTORIS [None]
  - ANXIETY [None]
  - ARTERIOSCLEROSIS CORONARY ARTERY [None]
  - BLOOD CHOLESTEROL INCREASED [None]
  - BLOOD CREATINE PHOSPHOKINASE INCREASED [None]
  - BRONCHITIS [None]
  - CARDIAC DISORDER [None]
  - CARDIAC FAILURE CONGESTIVE [None]
  - CHEST PAIN [None]
  - CORONARY ARTERY DISEASE [None]
  - DEPRESSION [None]
  - DIABETES MELLITUS [None]
  - DYSPEPSIA [None]
  - DYSPNOEA [None]
  - FATIGUE [None]
  - GASTROOESOPHAGEAL REFLUX DISEASE [None]
  - GOUTY ARTHRITIS [None]
  - INFLUENZA [None]
  - LIMB INJURY [None]
  - MALAISE [None]
  - MALIGNANT HYPERTENSION [None]
  - MYOCARDIAL INFARCTION [None]
  - MYOCARDIAL ISCHAEMIA [None]
  - NASAL DISCOMFORT [None]
  - OEDEMA PERIPHERAL [None]
  - PAIN IN EXTREMITY [None]
  - PALPITATIONS [None]
  - RESPIRATORY DISORDER [None]
  - RHINITIS ALLERGIC [None]
  - SKIN LESION [None]
  - SLEEP APNOEA SYNDROME [None]
  - STRESS [None]
  - TINNITUS [None]
  - TRANSIENT ISCHAEMIC ATTACK [None]
  - UPPER RESPIRATORY TRACT INFECTION [None]
